FAERS Safety Report 16829223 (Version 1)
Quarter: 2019Q3

REPORT INFORMATION
  Report Type: Spontaneous
  Country: US (occurrence: US)
  Receive Date: 20190919
  Receipt Date: 20190919
  Transmission Date: 20191005
  Serious: No
  Sender: FDA-Public Use
  Company Number: US-AMERICAN REGENT INC-20182249

PATIENT
  Age: 40 Year
  Sex: Female
  Weight: 77 kg

DRUGS (1)
  1. INJECTAFER [Suspect]
     Active Substance: FERRIC CARBOXYMALTOSE
     Indication: IRON DEFICIENCY ANAEMIA
     Dosage: 750 MG WEEKLY 1 DAYS
     Dates: start: 20181119, end: 20181119

REACTIONS (1)
  - Pruritus [Recovering/Resolving]
